FAERS Safety Report 5213190-8 (Version None)
Quarter: 2007Q1

REPORT INFORMATION
  Report Type: 
  Country: None (occurrence: None)
  Receive Date: 20070119
  Receipt Date: 20070108
  Transmission Date: 20070707
  Serious: Yes (Hospitalization)
  Sender: FDA-Public Use
  Company Number: FR-GLAXOSMITHKLINE-B0453572A

PATIENT
  Age: 40 Year
  Sex: Male
  Weight: 52 kg

DRUGS (4)
  1. KIVEXA [Suspect]
     Indication: HIV INFECTION
     Dosage: 1UNIT PER DAY
     Route: 048
     Dates: start: 20051205
  2. VIREAD [Suspect]
     Indication: HIV INFECTION
     Dosage: 245MG PER DAY
     Route: 048
     Dates: start: 20030310, end: 20061101
  3. EPIVIR [Concomitant]
     Indication: HIV INFECTION
     Route: 048
     Dates: start: 20001221, end: 20051205
  4. ZIAGEN [Concomitant]
     Indication: HIV INFECTION
     Route: 048
     Dates: start: 20030310, end: 20051205

REACTIONS (12)
  - ARTHRALGIA [None]
  - BLOOD PHOSPHORUS INCREASED [None]
  - CHEST PAIN [None]
  - FATIGUE [None]
  - HYPOCALCAEMIA [None]
  - HYPOPHOSPHATAEMIA [None]
  - OSTEOMALACIA [None]
  - OSTEOPENIA [None]
  - PAIN IN EXTREMITY [None]
  - RENAL FAILURE [None]
  - SCINTIGRAPHY [None]
  - SPONDYLITIS [None]
